FAERS Safety Report 18676496 (Version 1)
Quarter: 2020Q4

REPORT INFORMATION
  Report Type: Spontaneous
  Country: US (occurrence: US)
  Receive Date: 20201229
  Receipt Date: 20201229
  Transmission Date: 20210114
  Serious: Yes (Hospitalization)
  Sender: FDA-Public Use
  Company Number: None

PATIENT
  Age: 91 Year
  Sex: Male
  Weight: 68 kg

DRUGS (18)
  1. BAMLANIVIMAB. [Suspect]
     Active Substance: BAMLANIVIMAB
     Indication: SARS-COV-2 TEST POSITIVE
     Dosage: ?          OTHER FREQUENCY:ONCE;?
     Route: 041
  2. ACEBUTOLOL [Concomitant]
     Active Substance: ACEBUTOLOL
  3. FINASTERIDE. [Concomitant]
     Active Substance: FINASTERIDE
  4. HEPARIN [Concomitant]
     Active Substance: HEPARIN SODIUM
  5. LISINOPRIL. [Concomitant]
     Active Substance: LISINOPRIL
  6. WARFARIN [Concomitant]
     Active Substance: WARFARIN
  7. METHYLPREDNISOLONE. [Concomitant]
     Active Substance: METHYLPREDNISOLONE
  8. POTASSIUM CHLORIDE ER [Concomitant]
     Active Substance: POTASSIUM CHLORIDE
  9. OYSTER SHELL CALCIUM/VIT D [Concomitant]
  10. MAG SULFATE [Concomitant]
  11. DEXAMETHASONE. [Concomitant]
     Active Substance: DEXAMETHASONE
  12. FUROSEMIDE. [Concomitant]
     Active Substance: FUROSEMIDE
  13. REMDESIVIR. [Concomitant]
     Active Substance: REMDESIVIR
  14. SIMVASTATIN. [Concomitant]
     Active Substance: SIMVASTATIN
  15. LACTATED RINGERS SOLUTION [Concomitant]
     Active Substance: CALCIUM CHLORIDE\POTASSIUM CHLORIDE\SODIUM CHLORIDE\SODIUM LACTATE
  16. DIGOXIN. [Concomitant]
     Active Substance: DIGOXIN
  17. TAMSULOSIN [Concomitant]
     Active Substance: TAMSULOSIN
  18. NORMAL SALINE [Concomitant]
     Active Substance: SODIUM CHLORIDE

REACTIONS (4)
  - Oxygen saturation decreased [None]
  - Respiratory failure [None]
  - Infusion related reaction [None]
  - COVID-19 pneumonia [None]

NARRATIVE: CASE EVENT DATE: 20201218
